FAERS Safety Report 5562635-2 (Version None)
Quarter: 2007Q4

REPORT INFORMATION
  Report Type: 
  Country: None (occurrence: None)
  Receive Date: 20071217
  Receipt Date: 20070313
  Transmission Date: 20080405
  Serious: No
  Sender: FDA-Public Use
  Company Number: US-KINGPHARMUSA00001-K200700291

PATIENT

DRUGS (1)
  1. PITOCIN [Suspect]
     Indication: LABOUR INDUCTION
     Dosage: 10 MILLIUNITS IN 250 ML BAG (NOS), UNK
     Route: 042

REACTIONS (4)
  - DRUG INEFFECTIVE [None]
  - FOETAL HEART RATE DECELERATION [None]
  - INCORRECT DRUG ADMINISTRATION RATE [None]
  - PYREXIA [None]
